FAERS Safety Report 4285807-6 (Version None)
Quarter: 2004Q1

REPORT INFORMATION
  Report Type: 
  Country: None (occurrence: None)
  Receive Date: 20040203
  Receipt Date: 20040123
  Transmission Date: 20041129
  Serious: Yes (Disabling)
  Sender: FDA-Public Use
  Company Number: 002#8#2004-00017

PATIENT
  Age: 87 Year
  Sex: Male

DRUGS (1)
  1. REGLAN [Suspect]
     Indication: DRUG USE FOR UNKNOWN INDICATION
     Dosage: 5MG, 4 IN 1 D, ORAL
     Route: 048

REACTIONS (6)
  - ANOREXIA [None]
  - INCONTINENCE [None]
  - MOBILITY DECREASED [None]
  - MUSCLE CONTRACTURE [None]
  - MUSCLE RIGIDITY [None]
  - TREMOR [None]
